FAERS Safety Report 14929465 (Version 1)
Quarter: 2018Q2

REPORT INFORMATION
  Report Type: Report from Study
  Country: US (occurrence: US)
  Receive Date: 20180523
  Receipt Date: 20180523
  Transmission Date: 20180711
  Serious: Yes (Other)
  Sender: FDA-Public Use
  Company Number: US-NAPPMUNDI-USA-2018-0143678

PATIENT
  Sex: Male

DRUGS (1)
  1. OXYCODONE HYDROCHLORIDE. [Suspect]
     Active Substance: OXYCODONE HYDROCHLORIDE
     Indication: PAIN
     Dosage: 80 MG, TID
     Route: 048
     Dates: start: 2003

REACTIONS (4)
  - Off label use [Unknown]
  - Squamous cell carcinoma [Not Recovered/Not Resolved]
  - Malaise [Not Recovered/Not Resolved]
  - Inadequate analgesia [Unknown]
